FAERS Safety Report 10457017 (Version 1)
Quarter: 2014Q3

REPORT INFORMATION
  Report Type: Spontaneous
  Country: US (occurrence: None)
  Receive Date: 20140828
  Receipt Date: 20140828
  Transmission Date: 20150326
  Serious: Yes (Hospitalization)
  Sender: FDA-Public Use
  Company Number: PHEH2014US006842

PATIENT

DRUGS (3)
  1. THYROID PREPARATIONS (NO INGREDIENTS/SUBSTANCES) [Concomitant]
  2. ANTIHYPERTENSIVES (NO INGREDIENTS/SUBSTANCES) [Concomitant]
  3. OCTREOTIDE [Suspect]
     Active Substance: OCTREOTIDE
     Indication: CARCINOID TUMOUR

REACTIONS (7)
  - Pancreatic disorder [None]
  - Nephrolithiasis [None]
  - Pancreatitis [None]
  - Renal impairment [None]
  - Short-bowel syndrome [None]
  - Dehydration [None]
  - Diarrhoea [None]
